FAERS Safety Report 9801889 (Version 1)
Quarter: 2014Q1

REPORT INFORMATION
  Report Type: Spontaneous
  Country: US (occurrence: US)
  Receive Date: 20140107
  Receipt Date: 20140107
  Transmission Date: 20141002
  Serious: No
  Sender: FDA-Public Use
  Company Number: US-ALLERGAN-1218127US

PATIENT
  Age: 17 Year
  Sex: Female

DRUGS (3)
  1. ACZONE [Suspect]
     Indication: ACNE
     Dosage: APPLY THIN SMEAR TO AFFECTED AREAS EVERY MORNING
     Route: 061
     Dates: start: 201206
  2. AMOXICILLIN [Concomitant]
     Indication: ACNE
     Dosage: 500 MG, BID
     Route: 048
     Dates: start: 2011
  3. GILDESS [Concomitant]
     Indication: ACNE
     Dosage: 1 DAILY
     Route: 048
     Dates: start: 2011

REACTIONS (1)
  - Acne cystic [Unknown]
